FAERS Safety Report 5027008-X (Version None)
Quarter: 2006Q2

REPORT INFORMATION
  Report Type: 
  Country: None (occurrence: None)
  Receive Date: 20060609
  Receipt Date: 20060529
  Transmission Date: 20061013
  Serious: Yes (Hospitalization, Other)
  Sender: FDA-Public Use
  Company Number: 2006068416

PATIENT
  Age: 30 Year
  Sex: Female
  Weight: 81.6475 kg

DRUGS (3)
  1. NORVASC [Suspect]
     Indication: HYPERTENSION
     Dosage: 10 MG ORAL
     Route: 048
     Dates: end: 20060530
  2. COZAAR (LOSRATAN POTASSIUM) [Concomitant]
  3. NEOBLOC (METOPROLOL TARTRATE) [Concomitant]

REACTIONS (4)
  - GLOMERULONEPHRITIS [None]
  - HAEMOGLOBIN DECREASED [None]
  - OEDEMA PERIPHERAL [None]
  - RENAL FAILURE CHRONIC [None]
